FAERS Safety Report 5892101-6 (Version None)
Quarter: 2008Q3

REPORT INFORMATION
  Report Type: 
  Country: None (occurrence: None)
  Receive Date: 20080922
  Receipt Date: 20080915
  Transmission Date: 20090109
  Serious: Yes (Other)
  Sender: FDA-Public Use
  Company Number: PHEH2008US06416

PATIENT
  Sex: Male

DRUGS (6)
  1. EXFORGE [Suspect]
     Dosage: 5/20 ONE DAILY
     Dates: start: 20080601, end: 20080810
  2. BENICAR [Concomitant]
     Dosage: 20 MG, UNK
     Dates: end: 20080810
  3. GEMFIBROZIL [Concomitant]
     Dosage: UNK
     Dates: end: 20080604
  4. FENOFIBRATE [Concomitant]
     Dosage: 160 MG, UNK
  5. ASPIRIN [Concomitant]
  6. OMEGA-3 FATTY ACIDS [Concomitant]

REACTIONS (4)
  - ABDOMINAL DISTENSION [None]
  - DIZZINESS [None]
  - FLATULENCE [None]
  - IRRITABLE BOWEL SYNDROME [None]
